FAERS Safety Report 23431951 (Version 3)
Quarter: 2024Q3

REPORT INFORMATION
  Report Type: Report from Study
  Country: US (occurrence: US)
  Receive Date: 20240123
  Receipt Date: 20240925
  Transmission Date: 20241017
  Serious: Yes (Other)
  Sender: UCB
  Company Number: US-UCBSA-2024001923

PATIENT
  Age: 11 Year
  Sex: Male
  Weight: 26 kg

DRUGS (5)
  1. FINTEPLA [Suspect]
     Active Substance: FENFLURAMINE
     Indication: Lennox-Gastaut syndrome
     Dosage: 17.6 MILLIGRAM, ONCE DAILY (QD)17.6 MILLIGRAM, ONCE DAILY (QD), 0.64 MG/KG/DAY
     Dates: start: 201912
  2. FINTEPLA [Suspect]
     Active Substance: FENFLURAMINE
     Dosage: 17.6 MILLIGRAM, ONCE DAILY (QD)17.6 MILLIGRAM, ONCE DAILY (QD), 0.64 MG/KG/DAY
     Dates: start: 20220408
  3. FINTEPLA [Suspect]
     Active Substance: FENFLURAMINE
     Dosage: 4 MILLILITER, 2X/DAY (BID)
     Dates: start: 20220513
  4. FINTEPLA [Suspect]
     Active Substance: FENFLURAMINE
     Dosage: 7.9 MILLIGRAM, ONCE DAILY (QD)
     Dates: start: 20230424, end: 20231024
  5. FINTEPLA [Suspect]
     Active Substance: FENFLURAMINE
     Dosage: 4 MILLILITER, 2X/DAY (BID)

REACTIONS (6)
  - Seizure [Recovered/Resolved]
  - Generalised tonic-clonic seizure [Unknown]
  - Influenza [Recovering/Resolving]
  - Illness [Unknown]
  - Emergency care [Unknown]
  - Aortic dilatation [Unknown]

NARRATIVE: CASE EVENT DATE: 20231227
